FAERS Safety Report 14139780 (Version 1)
Quarter: 2017Q4

REPORT INFORMATION
  Report Type: Spontaneous
  Country: IT (occurrence: IT)
  Receive Date: 20171029
  Receipt Date: 20171029
  Transmission Date: 20180321
  Serious: Yes (Life-Threatening, Hospitalization, Other)
  Sender: FDA-Public Use
  Company Number: IT-ALEMBIC PHARMACUETICALS LIMITED-2017SCAL000834

PATIENT

DRUGS (1)
  1. LAMOTRIGINE. [Suspect]
     Active Substance: LAMOTRIGINE
     Indication: EPILEPSY
     Dosage: UNK

REACTIONS (10)
  - Haemorrhage [Recovering/Resolving]
  - Rash maculo-papular [Recovering/Resolving]
  - Hepatomegaly [Recovering/Resolving]
  - Staphylococcal infection [Recovering/Resolving]
  - Leukocytosis [Recovering/Resolving]
  - Conjunctivitis [Recovering/Resolving]
  - Asthenia [Recovering/Resolving]
  - Respiratory distress [Recovering/Resolving]
  - Liver injury [Recovering/Resolving]
  - Toxic epidermal necrolysis [Recovering/Resolving]
